FAERS Safety Report 4731681-0 (Version None)
Quarter: 2005Q3

REPORT INFORMATION
  Report Type: 
  Country: None (occurrence: None)
  Receive Date: 20050725
  Receipt Date: 20050118
  Transmission Date: 20060218
  Serious: Yes (Hospitalization)
  Sender: FDA-Public Use
  Company Number: WAES 01090291

PATIENT
  Age: 69 Year
  Sex: Female

DRUGS (13)
  1. VIOXX [Suspect]
     Indication: ARTHRITIS
     Dosage: 25 MG/DAILY/PO
     Route: 048
  2. BETAPACE [Concomitant]
  3. POTASSIUM CHLORIDE [Concomitant]
  4. LANOXIN [Concomitant]
  5. LASIX [Concomitant]
  6. LEVOXYL [Concomitant]
  7. NORVASC [Concomitant]
  8. TOPROL-XL [Concomitant]
  9. TYLENOL (CAPLET) [Concomitant]
  10. VASOTEC RPD [Concomitant]
  11. XANAX [Concomitant]
  12. ZOCOR [Concomitant]
  13. IBUPROFEN [Concomitant]

REACTIONS (3)
  - ABDOMINAL PAIN UPPER [None]
  - BLOOD PRESSURE INCREASED [None]
  - GASTROINTESTINAL DISORDER [None]
